FAERS Safety Report 9669919 (Version 1)
Quarter: 2013Q4

REPORT INFORMATION
  Report Type: Spontaneous
  Country: US (occurrence: US)
  Receive Date: 20131105
  Receipt Date: 20131105
  Transmission Date: 20140711
  Serious: Yes (Other)
  Sender: FDA-Public Use
  Company Number: US-ABBVIE-13P-163-1162776-00

PATIENT
  Age: 26 Year
  Sex: Female

DRUGS (1)
  1. HUMIRA [Suspect]
     Indication: CROHN^S DISEASE
     Dates: end: 20110404

REACTIONS (13)
  - Discomfort [Unknown]
  - Multiple sclerosis [Unknown]
  - Pain [Unknown]
  - Balance disorder [Unknown]
  - Abasia [Unknown]
  - Amnesia [Unknown]
  - Confusional state [Unknown]
  - Activities of daily living impaired [Unknown]
  - Hypoaesthesia [Unknown]
  - Fatigue [Unknown]
  - Life expectancy shortened [Unknown]
  - Injury [Unknown]
  - Economic problem [Unknown]
